FAERS Safety Report 5570242-0 (Version None)
Quarter: 2007Q4

REPORT INFORMATION
  Report Type: 
  Country: None (occurrence: None)
  Receive Date: 20071219
  Receipt Date: 20071209
  Transmission Date: 20080405
  Serious: Yes (Other)
  Sender: FDA-Public Use
  Company Number: PHEH2007US15695

PATIENT
  Age: 60 Year
  Sex: Male
  Weight: 88.6 kg

DRUGS (3)
  1. LAMISIL [Suspect]
     Indication: ONYCHOMYCOSIS
     Dosage: BID,TOPICAL
     Route: 061
     Dates: start: 20071101
  2. FINASTERIDE [Suspect]
     Indication: HAIR GROWTH ABNORMAL
     Dosage: 1 MG,QD
  3. OMEPRAZOLE [Suspect]
     Indication: GASTROOESOPHAGEAL REFLUX DISEASE
     Dosage: 20 MG

REACTIONS (2)
  - GASTROOESOPHAGEAL REFLUX DISEASE [None]
  - HEART RATE DECREASED [None]
